FAERS Safety Report 10031743 (Version 1)
Quarter: 2014Q1

REPORT INFORMATION
  Report Type: Spontaneous
  Country: US (occurrence: US)
  Receive Date: 20140324
  Receipt Date: 20140324
  Transmission Date: 20141002
  Serious: No
  Sender: FDA-Public Use
  Company Number: US-PFIZER INC-2014082262

PATIENT
  Sex: 0

DRUGS (1)
  1. EFFEXOR XR [Suspect]
     Indication: MAJOR DEPRESSION
     Dosage: 75 MG, 2X/DAY (75MG IN A MORNING AND IN THE EVENING)
     Dates: start: 2011

REACTIONS (2)
  - Feeling abnormal [Unknown]
  - Laziness [Unknown]
